FAERS Safety Report 7483839-8 (Version None)
Quarter: 2011Q2

REPORT INFORMATION
  Report Type: 
  Country: None (occurrence: None)
  Receive Date: 20110517
  Receipt Date: 20110504
  Transmission Date: 20111010
  Serious: Yes (Hospitalization, Other)
  Sender: FDA-Public Use
  Company Number: PHHY2010CA45291

PATIENT
  Sex: Male

DRUGS (3)
  1. SANDOSTATIN LAR [Suspect]
     Dosage: 20 MG, QMO
     Route: 030
     Dates: start: 20100704
  2. SANDOSTATIN LAR [Suspect]
     Indication: NEUROENDOCRINE CARCINOMA
     Dosage: 30 MG, EVERY 4 WEEKS
     Route: 030
     Dates: start: 20100505
  3. SANDOSTATIN LAR [Suspect]
     Dosage: 20 MG EVERY 4 WEEKS
     Route: 030

REACTIONS (7)
  - LEUKOPENIA [None]
  - ANAEMIA [None]
  - HAEMOGLOBIN DECREASED [None]
  - METASTASES TO BONE [None]
  - PATHOLOGICAL FRACTURE [None]
  - HEPATIC PAIN [None]
  - BLOOD PRESSURE SYSTOLIC INCREASED [None]
